FAERS Safety Report 6399557-3 (Version None)
Quarter: 2009Q4

REPORT INFORMATION
  Report Type: 
  Country: None (occurrence: None)
  Receive Date: 20091014
  Receipt Date: 20091007
  Transmission Date: 20100525
  Serious: Yes (Death)
  Sender: FDA-Public Use
  Company Number: IT-TEVA-211642ISR

PATIENT
  Sex: Female

DRUGS (5)
  1. FLUOROURACIL [Suspect]
     Route: 041
     Dates: start: 20080717, end: 20080808
  2. FLUOROURACIL [Suspect]
     Route: 040
     Dates: start: 20080717, end: 20080808
  3. FLUOROURACIL [Suspect]
     Route: 040
     Dates: start: 20080825, end: 20081007
  4. FLUOROURACIL [Suspect]
     Route: 041
     Dates: start: 20080825, end: 20081007
  5. FOLINIC ACID [Suspect]
     Route: 042
     Dates: start: 20080717, end: 20081007

REACTIONS (1)
  - ACUTE MYOCARDIAL INFARCTION [None]
